FAERS Safety Report 14213166 (Version 1)
Quarter: 2017Q4

REPORT INFORMATION
  Report Type: Report from Study
  Country: US (occurrence: US)
  Receive Date: 20171122
  Receipt Date: 20171122
  Transmission Date: 20180321
  Serious: No
  Sender: FDA-Public Use
  Company Number: US-PRINSTON PHARMACEUTICAL INC.-2017PRN00053

PATIENT
  Age: 52 Year
  Sex: Male

DRUGS (1)
  1. IRBESARTAN. [Suspect]
     Active Substance: IRBESARTAN

REACTIONS (1)
  - Erectile dysfunction [Recovered/Resolved]
